FAERS Safety Report 6715464-8 (Version None)
Quarter: 2010Q2

REPORT INFORMATION
  Report Type: 
  Country: None (occurrence: None)
  Receive Date: 20100507
  Receipt Date: 20100423
  Transmission Date: 20101027
  Serious: Yes (Other)
  Sender: FDA-Public Use
  Company Number: PHHO2000GB01027

PATIENT
  Sex: Male

DRUGS (2)
  1. CLOZARIL [Suspect]
     Dosage: 500 MG, UNK
     Route: 048
     Dates: start: 19980908, end: 20000304
  2. OLANZAPINE [Concomitant]

REACTIONS (5)
  - BLOOD COUNT ABNORMAL [None]
  - CONVULSION [None]
  - MENTAL IMPAIRMENT [None]
  - NEUTROPENIA [None]
  - SELF INJURIOUS BEHAVIOUR [None]
